FAERS Safety Report 13118628 (Version 1)
Quarter: 2017Q1

REPORT INFORMATION
  Report Type: Other
  Country: US (occurrence: US)
  Receive Date: 20170116
  Receipt Date: 20170116
  Transmission Date: 20170428
  Serious: Yes (Death)
  Sender: FDA-Public Use
  Company Number: US-LEHIGH_VALLEY-USA-POI0580201700062

PATIENT
  Age: 19 Year
  Sex: Female

DRUGS (9)
  1. RISPERIDONE. [Suspect]
     Active Substance: RISPERIDONE
     Dates: end: 2015
  2. ATOMOXETINE [Suspect]
     Active Substance: ATOMOXETINE
     Dates: end: 2015
  3. LEVOLET (LEVOTHYROXINE) [Suspect]
     Active Substance: LEVOTHYROXINE
     Dates: end: 2015
  4. FLUOXETINE [Suspect]
     Active Substance: FLUOXETINE HYDROCHLORIDE
     Dates: end: 2015
  5. BUTALBITAL [Suspect]
     Active Substance: BUTALBITAL
     Dates: end: 2015
  6. BUPROPION. [Suspect]
     Active Substance: BUPROPION
     Dates: end: 2015
  7. SALICYLATE [Suspect]
     Active Substance: SALICYLIC ACID
     Dates: end: 2015
  8. VENLAFAXINE [Suspect]
     Active Substance: VENLAFAXINE HYDROCHLORIDE
     Dates: end: 2015
  9. CLONAZEPAM. [Suspect]
     Active Substance: CLONAZEPAM
     Dates: end: 2015

REACTIONS (3)
  - Cardiac arrest [Fatal]
  - Respiratory arrest [Fatal]
  - Completed suicide [Fatal]

NARRATIVE: CASE EVENT DATE: 2015
